FAERS Safety Report 5187024-4 (Version None)
Quarter: 2006Q4

REPORT INFORMATION
  Report Type: 
  Country: None (occurrence: None)
  Receive Date: 20061220
  Receipt Date: 20061026
  Transmission Date: 20070319
  Serious: No
  Sender: FDA-Public Use
  Company Number: US-AMGEN-KDL198262

PATIENT
  Sex: Female

DRUGS (1)
  1. ENBREL [Suspect]
     Indication: RHEUMATOID ARTHRITIS
     Route: 058
     Dates: start: 20021206

REACTIONS (8)
  - ARTHRALGIA [None]
  - CONTUSION [None]
  - COUGH [None]
  - FATIGUE [None]
  - JOINT SWELLING [None]
  - NASOPHARYNGEAL DISORDER [None]
  - RESPIRATORY TRACT CONGESTION [None]
  - SINUS CONGESTION [None]
